FAERS Safety Report 11423098 (Version 2)
Quarter: 2015Q3

REPORT INFORMATION
  Report Type: Spontaneous
  Country: US (occurrence: US)
  Receive Date: 20150827
  Receipt Date: 20150827
  Transmission Date: 20151125
  Serious: Yes (Hospitalization, Other)
  Sender: FDA-Public Use
  Company Number: US-GLAXOSMITHKLINE-US2015GSK122468

PATIENT
  Age: 52 Year
  Weight: 73 kg

DRUGS (4)
  1. AXERT [Suspect]
     Active Substance: ALMOTRIPTAN MALATE
  2. RELPAX [Suspect]
     Active Substance: ELETRIPTAN HYDROBROMIDE
     Dosage: 40 MG, UNK
  3. IMITREX [Suspect]
     Active Substance: SUMATRIPTAN\SUMATRIPTAN SUCCINATE
  4. IMITREX [Suspect]
     Active Substance: SUMATRIPTAN\SUMATRIPTAN SUCCINATE

REACTIONS (7)
  - Drug ineffective [Unknown]
  - Adverse drug reaction [Unknown]
  - Migraine [Not Recovered/Not Resolved]
  - Meningitis viral [Recovering/Resolving]
  - Oesophageal spasm [Unknown]
  - Chest pain [Unknown]
  - Headache [Not Recovered/Not Resolved]

NARRATIVE: CASE EVENT DATE: 201209
